FAERS Safety Report 9458623 (Version 1)
Quarter: 2013Q3

REPORT INFORMATION
  Report Type: Spontaneous
  Country: FR (occurrence: FR)
  Receive Date: 20130814
  Receipt Date: 20130814
  Transmission Date: 20140515
  Serious: Yes (Hospitalization, Other)
  Sender: FDA-Public Use
  Company Number: FR-ACTAVIS-2013-13913

PATIENT
  Age: 47 Year
  Sex: Male

DRUGS (6)
  1. OXALIPLATIN (UNKNOWN) [Suspect]
     Indication: ADENOCARCINOMA PANCREAS
     Dosage: UNK
     Route: 065
  2. OXALIPLATIN (UNKNOWN) [Suspect]
     Indication: METASTASES TO LIVER
  3. IRINOTECAN HYDROCHLORIDE (UNKNOWN) [Suspect]
     Indication: ADENOCARCINOMA PANCREAS
     Dosage: UNK
     Route: 065
  4. IRINOTECAN HYDROCHLORIDE (UNKNOWN) [Suspect]
     Indication: METASTASES TO LIVER
  5. FLUOROURACIL (UNKNOWN) [Suspect]
     Indication: ADENOCARCINOMA PANCREAS
     Dosage: UNK
     Route: 065
  6. FLUOROURACIL (UNKNOWN) [Suspect]
     Indication: METASTASES TO LIVER

REACTIONS (3)
  - Bronchopulmonary aspergillosis [Recovering/Resolving]
  - Pneumocystis jirovecii pneumonia [Recovering/Resolving]
  - Febrile neutropenia [Unknown]
